FAERS Safety Report 6609131-9 (Version None)
Quarter: 2010Q1

REPORT INFORMATION
  Report Type: 
  Country: None (occurrence: None)
  Receive Date: 20100301
  Receipt Date: 20100219
  Transmission Date: 20100710
  Serious: Yes (Death)
  Sender: FDA-Public Use
  Company Number: DE-ABBOTT-10P-062-0628922-00

PATIENT
  Age: 70 Year
  Sex: Male

DRUGS (4)
  1. SIXANTONE DEPOT [Suspect]
     Indication: PROSTATE CANCER
     Route: 058
     Dates: start: 20090509, end: 20090509
  2. SIXANTONE DEPOT [Suspect]
     Dates: start: 20030101
  3. BICALUTAMIDE [Concomitant]
     Indication: ANTIANDROGEN THERAPY
     Route: 048
     Dates: start: 20090201, end: 20090501
  4. GOSERELIN [Concomitant]
     Indication: DRUG USE FOR UNKNOWN INDICATION

REACTIONS (2)
  - DEMENTIA [None]
  - MEDICAL DEVICE COMPLICATION [None]
